FAERS Safety Report 17466593 (Version 1)
Quarter: 2020Q1

REPORT INFORMATION
  Report Type: Spontaneous
  Country: US (occurrence: US)
  Receive Date: 20200213
  Receipt Date: 20200213
  Transmission Date: 20200409
  Serious: Yes (Hospitalization)
  Sender: FDA-Public Use
  Company Number: None

PATIENT
  Sex: Female
  Weight: 54.4 kg

DRUGS (1)
  1. ARIMIDEX [Suspect]
     Active Substance: ANASTROZOLE
     Indication: SURGERY
     Route: 048
     Dates: end: 20200202

REACTIONS (4)
  - Nausea [None]
  - Dyspnoea [None]
  - Cough [None]
  - Bronchitis [None]
